FAERS Safety Report 17389308 (Version 4)
Quarter: 2020Q2

REPORT INFORMATION
  Report Type: Spontaneous
  Country: FR (occurrence: FR)
  Receive Date: 20200207
  Receipt Date: 20200417
  Transmission Date: 20200713
  Serious: Yes (Death)
  Sender: FDA-Public Use
  Company Number: FR-CELLTRION INC.-2020FR018975

PATIENT

DRUGS (1)
  1. TRASTUZUMAB (UNKNOWN) [Suspect]
     Active Substance: TRASTUZUMAB
     Dosage: 9 INJECTIONS (TOTAL OF 56 MG / KG)
     Route: 064

REACTIONS (4)
  - Neonatal respiratory failure [Fatal]
  - Premature baby [Fatal]
  - Foetal exposure during pregnancy [Fatal]
  - Capillary leak syndrome [Fatal]
